FAERS Safety Report 7310581-6 (Version None)
Quarter: 2011Q1

REPORT INFORMATION
  Report Type: 
  Country: None (occurrence: None)
  Receive Date: 20110224
  Receipt Date: 20100329
  Transmission Date: 20110831
  Serious: No
  Sender: FDA-Public Use
  Company Number: US-BRISTOL-MYERS SQUIBB COMPANY-14981765

PATIENT
  Sex: Male

DRUGS (3)
  1. ACTOS [Suspect]
  2. GLUCOPHAGE [Suspect]
  3. JANUVIA [Suspect]

REACTIONS (1)
  - DRUG INEFFECTIVE [None]
